FAERS Safety Report 12248137 (Version 1)
Quarter: 2016Q2

REPORT INFORMATION
  Report Type: Spontaneous
  Country: US (occurrence: None)
  Receive Date: 20160407
  Receipt Date: 20160407
  Transmission Date: 20160815
  Serious: No
  Sender: FDA-Public Use
  Company Number: None

PATIENT
  Age: 23 Year
  Sex: Female

DRUGS (1)
  1. MIRENA [Suspect]
     Active Substance: LEVONORGESTREL

REACTIONS (7)
  - Nausea [None]
  - Irritability [None]
  - Abdominal pain [None]
  - Impaired work ability [None]
  - Asthenia [None]
  - Educational problem [None]
  - Amenorrhoea [None]

NARRATIVE: CASE EVENT DATE: 20150917
